FAERS Safety Report 8589553-X (Version None)
Quarter: 2012Q3

REPORT INFORMATION
  Report Type: 
  Country: None (occurrence: None)
  Receive Date: 20120813
  Receipt Date: 20120730
  Transmission Date: 20120928
  Serious: Yes (Other)
  Sender: FDA-Public Use
  Company Number: GB-MYLANLABS-2012S1015516

PATIENT
  Age: 44 Year
  Sex: Female

DRUGS (1)
  1. FEXOFENADINE [Suspect]
     Indication: URTICARIA CHRONIC
     Dates: start: 20120529, end: 20120710

REACTIONS (4)
  - ANGIOEDEMA [None]
  - URTICARIA [None]
  - WHEEZING [None]
  - LIP SWELLING [None]
